FAERS Safety Report 17361480 (Version 1)
Quarter: 2020Q1

REPORT INFORMATION
  Report Type: Report from Study
  Country: US (occurrence: US)
  Receive Date: 20200203
  Receipt Date: 20200203
  Transmission Date: 20200409
  Serious: Yes (Hospitalization)
  Sender: FDA-Public Use
  Company Number: US-ROCHE-2534797

PATIENT
  Age: 74 Year
  Sex: Female
  Weight: 46.76 kg

DRUGS (7)
  1. XYZAL [Concomitant]
     Active Substance: LEVOCETIRIZINE DIHYDROCHLORIDE
     Indication: URTICARIA
     Route: 048
     Dates: start: 2018
  2. METOPROLOL. [Concomitant]
     Active Substance: METOPROLOL
     Indication: HYPERTENSION
     Route: 048
  3. IRBESARTAN. [Concomitant]
     Active Substance: IRBESARTAN
     Indication: HYPERTENSION
     Route: 048
  4. XOLAIR [Suspect]
     Active Substance: OMALIZUMAB
     Indication: IDIOPATHIC URTICARIA
     Route: 058
     Dates: start: 201811
  5. XOLAIR [Suspect]
     Active Substance: OMALIZUMAB
     Indication: FOOD ALLERGY
  6. XOLAIR [Suspect]
     Active Substance: OMALIZUMAB
     Indication: URTICARIA
  7. HYDROCHLOROTHIAZIDE. [Concomitant]
     Active Substance: HYDROCHLOROTHIAZIDE
     Indication: HYPERTENSION
     Route: 048
     Dates: start: 2019

REACTIONS (7)
  - Intentional product use issue [Unknown]
  - Scratch [Not Recovered/Not Resolved]
  - Pruritus [Not Recovered/Not Resolved]
  - Hypertension [Not Recovered/Not Resolved]
  - Vomiting [Recovered/Resolved]
  - Off label use [Unknown]
  - Anaphylactic shock [Recovered/Resolved]

NARRATIVE: CASE EVENT DATE: 2019
